FAERS Safety Report 7501776-7 (Version None)
Quarter: 2011Q2

REPORT INFORMATION
  Report Type: 
  Country: None (occurrence: None)
  Receive Date: 20110523
  Receipt Date: 20110523
  Transmission Date: 20111010
  Serious: Yes (Hospitalization)
  Sender: FDA-Public Use
  Company Number: None

PATIENT
  Age: 87 Year
  Sex: Female
  Weight: 70.5 kg

DRUGS (9)
  1. TOPROL-XL [Concomitant]
  2. LOTENSIN [Concomitant]
  3. VIT D [Concomitant]
  4. COUMADIN [Suspect]
     Indication: ATRIAL FIBRILLATION
     Dosage: CHRONIC
  5. COUMADIN [Suspect]
     Indication: PULMONARY EMBOLISM
     Dosage: CHRONIC
  6. OMEPRAZOLE [Concomitant]
  7. LEVOTHYROXINE SODIUM [Concomitant]
  8. ZITHROMAX [Suspect]
     Indication: BRONCHITIS
     Dosage: 250MG (Z PAK) DAILY PO RECENT
     Route: 048
  9. CLARINEX [Concomitant]

REACTIONS (2)
  - SKIN HAEMORRHAGE [None]
  - INTERNATIONAL NORMALISED RATIO INCREASED [None]
